FAERS Safety Report 18682049 (Version 2)
Quarter: 2021Q1

REPORT INFORMATION
  Report Type: Spontaneous
  Country: IT (occurrence: IT)
  Receive Date: 20201230
  Receipt Date: 20210223
  Transmission Date: 20210419
  Serious: Yes (Death, Other)
  Sender: FDA-Public Use
  Company Number: IT-AMGEN-ITASP2020210587

PATIENT

DRUGS (4)
  1. TREOSULFAN [Concomitant]
     Active Substance: TREOSULFAN
     Dosage: 10 GRAM/SQM FOR 3 DAYS
  2. FLUDARABINE [Concomitant]
     Active Substance: FLUDARABINE PHOSPHATE
     Dosage: 30 MILLIGRAM/SQM FOR 5 DAYS
  3. CYTARABINE. [Concomitant]
     Active Substance: CYTARABINE
     Dosage: 2 GRAM/SQM FOR 5 DAYS
  4. PEGFILGRASTIM [Suspect]
     Active Substance: PEGFILGRASTIM
     Indication: AUTOLOGOUS HAEMATOPOIETIC STEM CELL TRANSPLANT
     Dosage: UNK
     Route: 058

REACTIONS (13)
  - Hepatotoxicity [Unknown]
  - Cardiotoxicity [Unknown]
  - Neutrophil count abnormal [Unknown]
  - Infection [Unknown]
  - Platelet count abnormal [Unknown]
  - Acute myeloid leukaemia recurrent [Unknown]
  - Neurotoxicity [Unknown]
  - Sepsis [Unknown]
  - Death [Fatal]
  - Systemic toxicity [Unknown]
  - Pyrexia [Unknown]
  - Fungal infection [Unknown]
  - Off label use [Unknown]
